FAERS Safety Report 7889714-9 (Version None)
Quarter: 2011Q4

REPORT INFORMATION
  Report Type: 
  Country: None (occurrence: None)
  Receive Date: 20111103
  Receipt Date: 20111026
  Transmission Date: 20120403
  Serious: Yes (Other)
  Sender: FDA-Public Use
  Company Number: MY-BAXTER-2011BH034792

PATIENT
  Age: 41 Year
  Sex: Female

DRUGS (17)
  1. FILGRASTIM [Concomitant]
     Indication: T-CELL TYPE ACUTE LEUKAEMIA
     Route: 058
  2. CYCLOPHOSPHAMIDE [Suspect]
     Indication: T-CELL TYPE ACUTE LEUKAEMIA
     Route: 042
  3. DIPHENHYDRAMINE HCL [Concomitant]
     Indication: PROPHYLAXIS
     Route: 042
  4. MESNA [Concomitant]
     Indication: T-CELL TYPE ACUTE LEUKAEMIA
     Route: 042
  5. LEUCOVORIN CALCIUM [Concomitant]
     Indication: T-CELL TYPE ACUTE LEUKAEMIA
     Route: 042
  6. ALEMTUZUMAB [Suspect]
     Indication: T-CELL TYPE ACUTE LEUKAEMIA
     Route: 058
  7. METHOTREXATE [Suspect]
     Route: 042
  8. VINCRISTINE SULFATE [Suspect]
     Indication: T-CELL TYPE ACUTE LEUKAEMIA
     Route: 040
  9. METHOTREXATE [Suspect]
     Indication: T-CELL TYPE ACUTE LEUKAEMIA
     Route: 037
  10. DOXORUBICIN HCL [Suspect]
     Indication: T-CELL TYPE ACUTE LEUKAEMIA
     Route: 042
  11. ACYCLOVIR [Concomitant]
     Indication: PROPHYLAXIS
     Route: 048
  12. CYTARABINE [Suspect]
     Route: 042
  13. DEXAMETHASONE [Suspect]
     Indication: T-CELL TYPE ACUTE LEUKAEMIA
     Route: 065
  14. METHOTREXATE [Suspect]
     Route: 042
  15. CYTARABINE [Suspect]
     Indication: T-CELL TYPE ACUTE LEUKAEMIA
     Route: 037
  16. ACETAMINOPHEN [Concomitant]
     Indication: PROPHYLAXIS
     Route: 048
  17. LEUCOVORIN CALCIUM [Concomitant]
     Route: 042

REACTIONS (2)
  - CYTOMEGALOVIRUS INFECTION [None]
  - NEUTROPENIA [None]
